FAERS Safety Report 10379904 (Version 1)
Quarter: 2014Q3

REPORT INFORMATION
  Report Type: Spontaneous
  Country: US (occurrence: US)
  Receive Date: 20140813
  Receipt Date: 20140813
  Transmission Date: 20150326
  Serious: Yes (Hospitalization)
  Sender: FDA-Public Use
  Company Number: US-AMGEN-USASP2014060969

PATIENT
  Age: 10 Year
  Sex: Male
  Weight: 78.91 kg

DRUGS (1)
  1. PROCRIT [Suspect]
     Active Substance: ERYTHROPOIETIN
     Indication: NEPHROGENIC ANAEMIA
     Dosage: ONCE WEEKLY
     Route: 058
     Dates: start: 2003

REACTIONS (2)
  - Blood count abnormal [Unknown]
  - Renal disorder [Unknown]
